FAERS Safety Report 9203240 (Version 1)
Quarter: 2013Q1

REPORT INFORMATION
  Report Type: Spontaneous
  Country: US (occurrence: None)
  Receive Date: 20120709
  Receipt Date: 20120709
  Transmission Date: 20140127
  Serious: Yes (Other)
  Sender: FDA-Public Use
  Company Number: PHEH2011US07800

PATIENT
  Age: 70 Year
  Sex: Female
  Weight: 93.9 kg

DRUGS (10)
  1. GLEEVEC (IMATINIB) UNKNOWN [Suspect]
     Dosage: (1DF PER DAY)
     Route: 048
  2. LISINOPRIL + HYDROCHLOROTHIAZIDE [Suspect]
     Route: 048
     Dates: start: 201001, end: 201110
  3. METOPROLOL (METOPROLOL) [Concomitant]
  4. SIMVASTATIN (SIMVASTATIN) [Concomitant]
  5. TOPROL XL (METOPROLOL SUCCINATE) [Concomitant]
  6. DETROL (TOLTERODINE L-TARTRATE) [Concomitant]
  7. SYNTHROID (LEVOTHYROXINE SODIUM) [Concomitant]
  8. ZOCOR (SIMVASTATIN) [Concomitant]
  9. AMLODIPINE (AMLODIPINE) [Concomitant]
  10. ANTIHYPERTENSIVE DRUGS [Suspect]

REACTIONS (5)
  - Angioedema [None]
  - Malaise [None]
  - Lip swelling [None]
  - Swollen tongue [None]
  - Neoplasm recurrence [None]
